FAERS Safety Report 9022520 (Version 1)
Quarter: 2013Q1

REPORT INFORMATION
  Report Type: Spontaneous
  Country: US (occurrence: US)
  Receive Date: 20130118
  Receipt Date: 20130118
  Transmission Date: 20140127
  Serious: No
  Sender: FDA-Public Use
  Company Number: US-GLAXOSMITHKLINE-A0912375B

PATIENT
  Age: 81 Year
  Sex: Female

DRUGS (5)
  1. PROMACTA [Suspect]
     Indication: AUTOIMMUNE THROMBOCYTOPENIA
     Dosage: 25MG PER DAY
     Route: 048
     Dates: start: 20100211
  2. PILOCARPINE [Concomitant]
  3. LATANOPROST [Concomitant]
  4. TIMOLOL MALEATE [Concomitant]
  5. LEVOTHROID [Concomitant]

REACTIONS (2)
  - Feeling abnormal [Unknown]
  - Rash [Unknown]
